FAERS Safety Report 7997901 (Version 2)
Quarter: 2012Q4

REPORT INFORMATION
  Report Type: 
  Country: CA (occurrence: CA)
  Receive Date: 20110620
  Receipt Date: 20121106
  Transmission Date: 20130627
  Serious: Yes (Other)
  Sender: FDA-Public Use
  Company Number: PHHY2008CA17740

PATIENT
  Sex: Male

DRUGS (4)
  1. SANDOSTATIN LAR [Suspect]
     Indication: ACROMEGALY
     Dosage: 30 mg every 4 weeks
     Route: 030
     Dates: start: 20040220
  2. BACLOFEN [Concomitant]
  3. METOPROLOL [Concomitant]
  4. HYDROMORPHONE [Concomitant]

REACTIONS (5)
  - Injury [Unknown]
  - Pain in extremity [Unknown]
  - Arthralgia [Unknown]
  - Neoplasm progression [Unknown]
  - Malabsorption from injection site [Recovered/Resolved]
